FAERS Safety Report 12688458 (Version 1)
Quarter: 2016Q3

REPORT INFORMATION
  Report Type: Report from Study
  Country: DE (occurrence: DE)
  Receive Date: 20160825
  Receipt Date: 20160825
  Transmission Date: 20161109
  Serious: Yes (Hospitalization)
  Sender: FDA-Public Use
  Company Number: DE-ABBVIE-16P-062-1707187-00

PATIENT
  Age: 35 Year
  Sex: Female
  Weight: 83 kg

DRUGS (4)
  1. HUMIRA [Suspect]
     Active Substance: ADALIMUMAB
     Indication: ANKYLOSING SPONDYLITIS
  2. L-THYROXIN [Concomitant]
     Active Substance: LEVOTHYROXINE SODIUM
     Indication: PRODUCT USED FOR UNKNOWN INDICATION
  3. FOLIC ACID. [Concomitant]
     Active Substance: FOLIC ACID
     Indication: PRODUCT USED FOR UNKNOWN INDICATION
  4. HUMIRA [Suspect]
     Active Substance: ADALIMUMAB
     Indication: CROHN^S DISEASE
     Route: 058
     Dates: start: 201204, end: 201601

REACTIONS (20)
  - Arthropathy [Recovering/Resolving]
  - Arthralgia [Recovering/Resolving]
  - General physical health deterioration [Recovering/Resolving]
  - Neutrophil count increased [Unknown]
  - Haemoglobin decreased [Unknown]
  - Blood urea decreased [Unknown]
  - Back pain [Recovering/Resolving]
  - Exposure during pregnancy [Unknown]
  - C-reactive protein increased [Recovering/Resolving]
  - Urinary sediment present [Unknown]
  - White blood cells urine positive [Unknown]
  - Joint swelling [Recovering/Resolving]
  - Tendonitis [Recovering/Resolving]
  - Erythema nodosum [Recovering/Resolving]
  - Red blood cell count decreased [Unknown]
  - Haemoglobin urine [Unknown]
  - Synovitis [Recovering/Resolving]
  - Ankylosing spondylitis [Recovered/Resolved]
  - Urinary tract infection [Unknown]
  - Bacterial test positive [Unknown]

NARRATIVE: CASE EVENT DATE: 201601
